FAERS Safety Report 19185740 (Version 1)
Quarter: 2021Q2

REPORT INFORMATION
  Report Type: Report from Study
  Country: US (occurrence: US)
  Receive Date: 20210427
  Receipt Date: 20210427
  Transmission Date: 20210717
  Serious: No
  Sender: FDA-Public Use
  Company Number: US-BIOVITRUM-2021US3277

PATIENT
  Age: 17 Year
  Sex: Female

DRUGS (1)
  1. KINERET [Suspect]
     Active Substance: ANAKINRA
     Indication: HIDRADENITIS
     Route: 058
     Dates: start: 20210326, end: 20210405

REACTIONS (3)
  - Off label use [Recovered/Resolved]
  - Drug intolerance [Unknown]
  - Injection site pain [Unknown]

NARRATIVE: CASE EVENT DATE: 20210326
